FAERS Safety Report 6565824-3 (Version None)
Quarter: 2010Q1

REPORT INFORMATION
  Report Type: 
  Country: None (occurrence: None)
  Receive Date: 20100201
  Receipt Date: 20090608
  Transmission Date: 20100710
  Serious: No
  Sender: FDA-Public Use
  Company Number: US-ABBOTT-09P-163-0578670-00

PATIENT
  Sex: Male
  Weight: 99.88 kg

DRUGS (2)
  1. LUPRON DEPOT [Suspect]
     Indication: PROSTATE CANCER
     Route: 050
     Dates: start: 20090504, end: 20090504
  2. CASODEX [Concomitant]
     Indication: PROSTATE CANCER

REACTIONS (1)
  - FLUSHING [None]
